FAERS Safety Report 11233586 (Version 3)
Quarter: 2015Q3

REPORT INFORMATION
  Report Type: Spontaneous
  Country: US (occurrence: US)
  Receive Date: 20150702
  Receipt Date: 20150720
  Transmission Date: 20151125
  Serious: Yes (Other)
  Sender: FDA-Public Use
  Company Number: US-AMGEN-USASP2015064038

PATIENT
  Age: 63 Year
  Sex: Female
  Weight: 48.9 kg

DRUGS (1)
  1. PROLIA [Suspect]
     Active Substance: DENOSUMAB
     Indication: OSTEOPOROSIS POSTMENOPAUSAL
     Dosage: 60 MG, Q6MO
     Route: 058
     Dates: start: 20130815

REACTIONS (3)
  - Hip fracture [Unknown]
  - Femoral neck fracture [Unknown]
  - Fall [Unknown]

NARRATIVE: CASE EVENT DATE: 20150523
